FAERS Safety Report 7036202-8 (Version None)
Quarter: 2010Q4

REPORT INFORMATION
  Report Type: 
  Country: None (occurrence: None)
  Receive Date: 20101008
  Receipt Date: 20100923
  Transmission Date: 20110411
  Serious: Yes (Hospitalization, Other)
  Sender: FDA-Public Use
  Company Number: PHEH2007US12158

PATIENT
  Sex: Male

DRUGS (24)
  1. ZOMETA [Suspect]
     Dosage: UNK
     Dates: start: 20031126, end: 20070820
  2. PREDNISONE [Concomitant]
     Dosage: UNK
  3. NILANDRON [Concomitant]
     Dosage: UNK
  4. LOPURIN [Concomitant]
     Dosage: UNK
  5. ZITHROMAX [Concomitant]
     Dosage: UNK
  6. COUMADIN [Concomitant]
     Dosage: UNK
  7. VICODIN [Concomitant]
  8. LASIX [Concomitant]
     Dosage: UNK
  9. LOVENOX [Concomitant]
  10. ARANESP [Concomitant]
     Dosage: UNK
  11. VENOFER [Concomitant]
  12. CASODEX [Concomitant]
  13. OXYCONTIN [Concomitant]
     Dosage: UNK
  14. OXYCODONE [Concomitant]
  15. NEURONTIN [Concomitant]
  16. LEVAQUIN [Concomitant]
  17. FENTANYL [Concomitant]
     Dosage: 50 UG, UNK
  18. DAPTOMYCIN [Concomitant]
  19. VANCOMYCIN [Concomitant]
  20. BENADRYL ^ACHE^ [Concomitant]
  21. SOLU-MEDROL [Concomitant]
  22. CIPRO [Concomitant]
  23. BACLOFEN [Concomitant]
  24. ASPIRIN [Concomitant]

REACTIONS (40)
  - ANAEMIA [None]
  - CACHEXIA [None]
  - CARDIOMEGALY [None]
  - CEREBRAL INFARCTION [None]
  - CEREBROVASCULAR ACCIDENT [None]
  - DECUBITUS ULCER [None]
  - DEEP VEIN THROMBOSIS [None]
  - DEFORMITY [None]
  - ESCHERICHIA SEPSIS [None]
  - FAILURE TO THRIVE [None]
  - FALL [None]
  - FATIGUE [None]
  - GASTROINTESTINAL MOTILITY DISORDER [None]
  - HAEMATURIA [None]
  - HYPOKALAEMIA [None]
  - IMMOBILE [None]
  - INFECTION [None]
  - ISCHAEMIA [None]
  - LEUKOCYTOSIS [None]
  - LEUKOCYTURIA [None]
  - LUNG INFILTRATION [None]
  - MASS [None]
  - MEMORY IMPAIRMENT [None]
  - MUSCULAR WEAKNESS [None]
  - NEUROGENIC BLADDER [None]
  - OSTEOARTHRITIS [None]
  - OSTEONECROSIS OF JAW [None]
  - PAIN [None]
  - PAIN IN EXTREMITY [None]
  - PLEURAL EFFUSION [None]
  - PNEUMONIA [None]
  - STAPHYLOCOCCAL OSTEOMYELITIS [None]
  - TESTIS CANCER [None]
  - TOOTH ABSCESS [None]
  - TOOTH INFECTION [None]
  - TOOTH LOSS [None]
  - TRANSURETHRAL PROSTATECTOMY [None]
  - URINARY TRACT INFECTION [None]
  - VENA CAVA FILTER INSERTION [None]
  - WALKING DISABILITY [None]
